FAERS Safety Report 5810058-0 (Version None)
Quarter: 2008Q3

REPORT INFORMATION
  Report Type: 
  Country: None (occurrence: None)
  Receive Date: 20080715
  Receipt Date: 20080709
  Transmission Date: 20090109
  Serious: Yes (Death)
  Sender: FDA-Public Use
  Company Number: A0737750A

PATIENT
  Age: 97 Year
  Sex: Female

DRUGS (6)
  1. VERAMYST [Suspect]
     Indication: MULTIPLE ALLERGIES
     Route: 045
  2. VITAMIN [Concomitant]
  3. BLOOD PRESSURE MEDICATION [Concomitant]
  4. HEART MEDICATION [Concomitant]
  5. CALCIUM [Concomitant]
  6. TYLENOL [Concomitant]

REACTIONS (3)
  - CARDIAC ARREST [None]
  - CARDIAC FAILURE CONGESTIVE [None]
  - CIRCULATORY COLLAPSE [None]
